FAERS Safety Report 23415755 (Version 2)
Quarter: 2024Q1

REPORT INFORMATION
  Report Type: Spontaneous
  Country: US (occurrence: US)
  Receive Date: 20240118
  Receipt Date: 20240125
  Transmission Date: 20240409
  Serious: No
  Sender: FDA-Public Use
  Company Number: US-SANDOZ-SDZ2024US005278

PATIENT
  Sex: Female

DRUGS (1)
  1. RECLAST [Suspect]
     Active Substance: ZOLEDRONIC ACID
     Indication: Product used for unknown indication
     Dosage: 5MG/100ML
     Route: 065

REACTIONS (8)
  - Influenza [Unknown]
  - Nausea [Unknown]
  - Pyrexia [Unknown]
  - Rash [Unknown]
  - Chest pain [Unknown]
  - Dyspnoea [Unknown]
  - Gait disturbance [Unknown]
  - Headache [Unknown]
